FAERS Safety Report 24664685 (Version 1)
Quarter: 2024Q4

REPORT INFORMATION
  Report Type: Spontaneous
  Country: BR (occurrence: BR)
  Receive Date: 20241126
  Receipt Date: 20241126
  Transmission Date: 20250115
  Serious: Yes (Other)
  Sender: CHEPLAPHARM
  Company Number: BR-CHEPLA-2024014786

PATIENT
  Age: 14 Year
  Sex: Female

DRUGS (1)
  1. CLONAZEPAM [Suspect]
     Active Substance: CLONAZEPAM
     Route: 048

REACTIONS (7)
  - Loss of consciousness [Recovered/Resolved]
  - Speech disorder [Not Recovered/Not Resolved]
  - Urinary incontinence [Not Recovered/Not Resolved]
  - Pain [Not Recovered/Not Resolved]
  - Victim of sexual abuse [Not Recovered/Not Resolved]
  - Amnesia [Not Recovered/Not Resolved]
  - Toxicity to various agents [Not Recovered/Not Resolved]
